FAERS Safety Report 18248418 (Version 3)
Quarter: 2020Q4

REPORT INFORMATION
  Report Type: Report from Study
  Country: CA (occurrence: CA)
  Receive Date: 20200909
  Receipt Date: 20201104
  Transmission Date: 20210113
  Serious: Yes (Hospitalization)
  Sender: FDA-Public Use
  Company Number: CA-JNJFOC-20191138642

PATIENT
  Age: 15 Year
  Sex: Female
  Weight: 63.2 kg

DRUGS (2)
  1. REMICADE [Suspect]
     Active Substance: INFLIXIMAB
     Indication: CROHN^S DISEASE
     Route: 042
     Dates: start: 20190618
  2. REMICADE [Suspect]
     Active Substance: INFLIXIMAB
     Dosage: PRESCRIBED DATE AWAITING FOR APPROVAL
     Route: 042
     Dates: start: 20201027

REACTIONS (1)
  - Intestinal stenosis [Recovered/Resolved]

NARRATIVE: CASE EVENT DATE: 201910
